FAERS Safety Report 15662575 (Version 3)
Quarter: 2019Q2

REPORT INFORMATION
  Report Type: Spontaneous
  Country: NL (occurrence: NL)
  Receive Date: 20181127
  Receipt Date: 20190606
  Transmission Date: 20190711
  Serious: Yes (Other)
  Sender: FDA-Public Use
  Company Number: NL-MYLANLABS-2018M1088239

PATIENT
  Age: 71 Year
  Sex: Male

DRUGS (6)
  1. IRINOTECAN [Concomitant]
     Active Substance: IRINOTECAN
     Indication: COLON CANCER STAGE III
     Dosage: UNK
  2. CAPECITABINE. [Suspect]
     Active Substance: CAPECITABINE
     Indication: COLON CANCER
     Dosage: 1000 MILLIGRAM/SQ. METER, QD (D1-14 IN THREE WEEKLY COURSES FOR IT SIGMOID CARCINOMA )
     Route: 065
  3. CARBOPLATIN;PEMETREXED [Concomitant]
     Indication: COLON CANCER STAGE III
     Dosage: UNK
  4. OXALIPLATIN. [Suspect]
     Active Substance: OXALIPLATIN
     Indication: COLON CANCER STAGE III
     Dosage: 130 MILLIGRAM/SQ. METER, Q3W
     Route: 065
  5. CAPECITABINE. [Suspect]
     Active Substance: CAPECITABINE
     Indication: LUNG NEOPLASM MALIGNANT
     Dosage: A DOSE REDUCTION OF THE CAPECITABINE PASSED TO 75% AFTER THE THIRD COURSE AND 50% AFTER THE FOURTH
  6. CERITINIB [Concomitant]
     Active Substance: CERITINIB
     Indication: COLON CANCER STAGE III
     Dosage: 600 MILLIGRAM, Q3W(80% OF NORMAL DOSAGE)
     Route: 065

REACTIONS (1)
  - Palmar-plantar erythrodysaesthesia syndrome [Unknown]
